FAERS Safety Report 6760894-1 (Version None)
Quarter: 2010Q2

REPORT INFORMATION
  Report Type: 
  Country: None (occurrence: None)
  Receive Date: 20100608
  Receipt Date: 20100528
  Transmission Date: 20101027
  Serious: Yes (Other)
  Sender: FDA-Public Use
  Company Number: US-TEVA-236315USA

PATIENT
  Sex: Female

DRUGS (2)
  1. CLARAVIS [Suspect]
     Route: 048
     Dates: start: 20100114, end: 20100219
  2. CLARAVIS [Suspect]
     Route: 048
     Dates: start: 20100410, end: 20100527

REACTIONS (4)
  - CRYING [None]
  - HEADACHE [None]
  - MOOD SWINGS [None]
  - SELF-INJURIOUS IDEATION [None]
